FAERS Safety Report 6903295-5 (Version None)
Quarter: 2010Q3

REPORT INFORMATION
  Report Type: 
  Country: None (occurrence: None)
  Receive Date: 20100803
  Receipt Date: 20080915
  Transmission Date: 20110219
  Serious: Yes (Other)
  Sender: FDA-Public Use
  Company Number: US-PFIZER INC-2008068450

PATIENT
  Sex: Male
  Weight: 95.7 kg

DRUGS (2)
  1. LYRICA [Suspect]
     Indication: PAIN
     Route: 048
     Dates: start: 20070101
  2. LYRICA [Suspect]
     Indication: RADICULOPATHY

REACTIONS (5)
  - ANTINUCLEAR ANTIBODY POSITIVE [None]
  - BLOOD CHOLESTEROL INCREASED [None]
  - FIBROMYALGIA [None]
  - NEPHROLITHIASIS [None]
  - WEIGHT INCREASED [None]
